FAERS Safety Report 6851223-3 (Version None)
Quarter: 2010Q3

REPORT INFORMATION
  Report Type: 
  Country: None (occurrence: None)
  Receive Date: 20100716
  Receipt Date: 20100709
  Transmission Date: 20110219
  Serious: Yes (Hospitalization)
  Sender: FDA-Public Use
  Company Number: PHHO2010NL08066

PATIENT
  Sex: Male
  Weight: 57 kg

DRUGS (3)
  1. BLINDED ACZ885 ACZ+ [Suspect]
     Indication: JUVENILE ARTHRITIS
     Dosage: UNK
     Route: 058
     Dates: start: 20100412, end: 20100512
  2. BLINDED NO TREATMENT RECEIVED NOMED [Suspect]
     Indication: JUVENILE ARTHRITIS
     Dosage: UNK
     Route: 058
     Dates: start: 20100412, end: 20100512
  3. BLINDED PLACEBO COMP-PLA+ [Suspect]
     Indication: JUVENILE ARTHRITIS
     Dosage: UNK
     Route: 058
     Dates: start: 20100412, end: 20100512

REACTIONS (7)
  - ARTHRALGIA [None]
  - DIARRHOEA [None]
  - DISORIENTATION [None]
  - GASTROENTERITIS [None]
  - HEADACHE [None]
  - PYREXIA [None]
  - VOMITING [None]
